FAERS Safety Report 23686932 (Version 1)
Quarter: 2024Q1

REPORT INFORMATION
  Report Type: Other
  Country: US (occurrence: None)
  Receive Date: 20240329
  Receipt Date: 20240329
  Transmission Date: 20240410
  Serious: Yes (Other)
  Sender: FDA-Public Use
  Company Number: US-ROCHE-3528980

PATIENT
  Age: 71 Year
  Sex: Female

DRUGS (1)
  1. ACTEMRA [Suspect]
     Active Substance: TOCILIZUMAB
     Indication: Rheumatoid arthritis
     Dosage: STRENGTH: 80 MG, 200 MG, 400 MG, VIAL
     Route: 042

REACTIONS (4)
  - Myocardial infarction [Unknown]
  - Intervertebral disc degeneration [Unknown]
  - Neuropathy peripheral [Unknown]
  - Fibromyalgia [Unknown]
